FAERS Safety Report 15363073 (Version 1)
Quarter: 2018Q3

REPORT INFORMATION
  Report Type: Spontaneous
  Country: CL (occurrence: CL)
  Receive Date: 20180907
  Receipt Date: 20180907
  Transmission Date: 20181010
  Serious: Yes (Death)
  Sender: FDA-Public Use
  Company Number: CL-TAKEDA-2018TUS026669

PATIENT
  Age: 38 Year
  Sex: Male
  Weight: 108 kg

DRUGS (1)
  1. ICLUSIG [Suspect]
     Active Substance: PONATINIB
     Indication: CHRONIC MYELOID LEUKAEMIA
     Dosage: 45 MG, QD
     Route: 048
     Dates: start: 20180730, end: 20180815

REACTIONS (1)
  - Death [Fatal]

NARRATIVE: CASE EVENT DATE: 20180815
